FAERS Safety Report 13400981 (Version 1)
Quarter: 2017Q2

REPORT INFORMATION
  Report Type: Spontaneous
  Country: US (occurrence: US)
  Receive Date: 20170404
  Receipt Date: 20170404
  Transmission Date: 20170830
  Serious: Yes (Other)
  Sender: FDA-Public Use
  Company Number: US-GLAXOSMITHKLINE-US2017046386

PATIENT
  Age: 63 Year
  Sex: Female

DRUGS (2)
  1. DICLOFENAC SODIUM. [Suspect]
     Active Substance: DICLOFENAC SODIUM
     Indication: ARTHRITIS
     Dosage: UNK UNK, QD (USING IT ONCE A DAY ON HER UPPER RIGHT THIGH)
     Dates: start: 201611, end: 20170329
  2. DICLOFENAC SODIUM. [Suspect]
     Active Substance: DICLOFENAC SODIUM
     Indication: NERVE COMPRESSION

REACTIONS (11)
  - Sneezing [Recovered/Resolved]
  - Off label use [Unknown]
  - Constipation [Not Recovered/Not Resolved]
  - Asthenia [Not Recovered/Not Resolved]
  - Drug administered at inappropriate site [Unknown]
  - Weight increased [Not Recovered/Not Resolved]
  - Pneumonia [Recovering/Resolving]
  - Inappropriate schedule of drug administration [Unknown]
  - Cough [Not Recovered/Not Resolved]
  - Dyspnoea [Not Recovered/Not Resolved]
  - Fatigue [Not Recovered/Not Resolved]
